FAERS Safety Report 14650359 (Version 1)
Quarter: 2018Q1

REPORT INFORMATION
  Report Type: Spontaneous
  Country: US (occurrence: US)
  Receive Date: 20180316
  Receipt Date: 20180316
  Transmission Date: 20180509
  Serious: Yes (Hospitalization, Other)
  Sender: FDA-Public Use
  Company Number: US-SHIRE-US201805207

PATIENT
  Age: 91 Year
  Sex: Male
  Weight: 70.3 kg

DRUGS (4)
  1. GABAPENTIN. [Concomitant]
     Active Substance: GABAPENTIN
     Indication: NEUROPATHY PERIPHERAL
  2. PENTASA [Suspect]
     Active Substance: MESALAMINE
     Indication: CROHN^S DISEASE
     Dosage: 500 MG, 2X/DAY:BID
     Route: 065
  3. FINASTERIDE. [Concomitant]
     Active Substance: FINASTERIDE
     Indication: PROSTATOMEGALY
  4. TERAZOSIN [Concomitant]
     Active Substance: TERAZOSIN\TERAZOSIN HYDROCHLORIDE
     Indication: PROSTATOMEGALY

REACTIONS (11)
  - Gastrointestinal pain [Unknown]
  - Renal disorder [Unknown]
  - Inappropriate schedule of drug administration [Not Recovered/Not Resolved]
  - Hypoacusis [Unknown]
  - Diabetes mellitus [Not Recovered/Not Resolved]
  - Inappropriate schedule of drug administration [Unknown]
  - Prescribed overdose [Not Recovered/Not Resolved]
  - Body height decreased [Not Recovered/Not Resolved]
  - Malaise [Not Recovered/Not Resolved]
  - Drug effect incomplete [Unknown]
  - Hypertension [Not Recovered/Not Resolved]

NARRATIVE: CASE EVENT DATE: 20180204
